FAERS Safety Report 7820671-7 (Version None)
Quarter: 2011Q4

REPORT INFORMATION
  Report Type: 
  Country: None (occurrence: None)
  Receive Date: 20111018
  Receipt Date: 20111012
  Transmission Date: 20120403
  Serious: Yes (Other)
  Sender: FDA-Public Use
  Company Number: US-BAXTER-2011BH032038

PATIENT
  Sex: Female

DRUGS (1)
  1. PROMETHAZINE [Suspect]
     Indication: NAUSEA
     Route: 065

REACTIONS (2)
  - MONOPLEGIA [None]
  - JOINT LOCK [None]
